FAERS Safety Report 14319887 (Version 1)
Quarter: 2017Q4

REPORT INFORMATION
  Report Type: Spontaneous
  Country: US (occurrence: US)
  Receive Date: 20171221
  Receipt Date: 20171221
  Transmission Date: 20180321
  Serious: No
  Sender: FDA-Public Use
  Company Number: None

PATIENT
  Sex: Male

DRUGS (1)
  1. NEXAVAR [Suspect]
     Active Substance: SORAFENIB
     Indication: ILL-DEFINED DISORDER
     Route: 048
     Dates: start: 20161205, end: 20171205

REACTIONS (3)
  - Echocardiogram abnormal [None]
  - Cardiac output decreased [None]
  - Therapy cessation [None]
